FAERS Safety Report 7389091-6 (Version None)
Quarter: 2011Q2

REPORT INFORMATION
  Report Type: 
  Country: None (occurrence: None)
  Receive Date: 20110401
  Receipt Date: 20110324
  Transmission Date: 20111010
  Serious: Yes (Life-Threatening, Hospitalization, Other)
  Sender: FDA-Public Use
  Company Number: GB-ROCHE-760015

PATIENT
  Sex: Male
  Weight: 74 kg

DRUGS (3)
  1. XELODA [Suspect]
     Indication: COLORECTAL CANCER
     Route: 048
     Dates: start: 20101101, end: 20101112
  2. OXALIPLATIN [Suspect]
     Indication: CHEMOTHERAPY
     Route: 048
     Dates: start: 20101101, end: 20101101
  3. SIMVASTATIN [Concomitant]
     Route: 048

REACTIONS (4)
  - DEHYDRATION [None]
  - BLOOD ALBUMIN DECREASED [None]
  - ILEITIS [None]
  - COLITIS [None]
